FAERS Safety Report 14585928 (Version 1)
Quarter: 2018Q1

REPORT INFORMATION
  Report Type: Spontaneous
  Country: US (occurrence: US)
  Receive Date: 20180228
  Receipt Date: 20180228
  Transmission Date: 20180509
  Serious: No
  Sender: FDA-Public Use
  Company Number: None

PATIENT
  Age: 61 Year
  Sex: Male

DRUGS (2)
  1. WARFARIN [Suspect]
     Active Substance: WARFARIN
     Indication: PORTAL VEIN THROMBOSIS
     Route: 048
     Dates: start: 20170224
  2. ENOXAPARIN [Suspect]
     Active Substance: ENOXAPARIN
     Indication: PORTAL VEIN THROMBOSIS
     Route: 058
     Dates: start: 20170224, end: 20170404

REACTIONS (7)
  - Treatment noncompliance [None]
  - Haemorrhage [None]
  - Metastases to liver [None]
  - Oesophageal mass [None]
  - Metastases to lung [None]
  - Therapy cessation [None]
  - Haematochezia [None]

NARRATIVE: CASE EVENT DATE: 20170311
